FAERS Safety Report 6925298-7 (Version None)
Quarter: 2010Q3

REPORT INFORMATION
  Report Type: 
  Country: None (occurrence: None)
  Receive Date: 20100810
  Receipt Date: 20100722
  Transmission Date: 20110219
  Serious: Yes (Other)
  Sender: FDA-Public Use
  Company Number: JPI-P-011424

PATIENT
  Age: 39 Year
  Sex: Male
  Weight: 83.9154 kg

DRUGS (7)
  1. XYREM [Suspect]
     Indication: CATAPLEXY
     Dosage: ,ORAL,  6 GM (3 GM, 2 IN 1D),ORAL
     Route: 048
     Dates: end: 20100716
  2. XYREM [Suspect]
     Indication: NARCOLEPSY
     Dosage: ,ORAL,  6 GM (3 GM, 2 IN 1D),ORAL
     Route: 048
     Dates: end: 20100716
  3. XYREM [Suspect]
     Indication: SOMNOLENCE
     Dosage: ,ORAL,  6 GM (3 GM, 2 IN 1D),ORAL
     Route: 048
     Dates: end: 20100716
  4. XYREM [Suspect]
     Indication: CATAPLEXY
     Dosage: ,ORAL,  6 GM (3 GM, 2 IN 1D),ORAL
     Route: 048
     Dates: start: 20080220
  5. XYREM [Suspect]
     Indication: NARCOLEPSY
     Dosage: ,ORAL,  6 GM (3 GM, 2 IN 1D),ORAL
     Route: 048
     Dates: start: 20080220
  6. XYREM [Suspect]
     Indication: SOMNOLENCE
     Dosage: ,ORAL,  6 GM (3 GM, 2 IN 1D),ORAL
     Route: 048
     Dates: start: 20080220
  7. LAMOTRIGINE [Concomitant]

REACTIONS (2)
  - AMNESIA [None]
  - EPILEPSY [None]
